FAERS Safety Report 26052486 (Version 1)
Quarter: 2025Q4

REPORT INFORMATION
  Report Type: Spontaneous
  Country: CN (occurrence: CN)
  Receive Date: 20251117
  Receipt Date: 20251117
  Transmission Date: 20260117
  Serious: Yes (Hospitalization)
  Sender: ALEXION PHARMACEUTICALS
  Company Number: CN-ASTRAZENECA-202511CHN008753CN

PATIENT
  Age: 61 Year
  Sex: Male

DRUGS (5)
  1. IMFINZI [Suspect]
     Active Substance: DURVALUMAB
     Indication: Bile duct cancer
     Dosage: 1500 MILLIGRAM
     Dates: start: 20251020, end: 20251020
  2. GEMCITABINE HYDROCHLORIDE [Suspect]
     Active Substance: GEMCITABINE HYDROCHLORIDE
     Indication: Bile duct cancer
     Dosage: 1.6 GRAM
     Dates: start: 20251020, end: 20251020
  3. TEGAFUR [Suspect]
     Active Substance: TEGAFUR
     Indication: Bile duct cancer
     Dosage: UNK
     Route: 065
     Dates: start: 20251020, end: 20251020
  4. GIMERACIL [Suspect]
     Active Substance: GIMERACIL
     Indication: Bile duct cancer
     Dosage: UNK
     Route: 065
     Dates: start: 20251020, end: 20251020
  5. OTERACIL POTASSIUM [Suspect]
     Active Substance: OTERACIL POTASSIUM
     Indication: Bile duct cancer
     Dosage: UNK
     Route: 065
     Dates: start: 20251020, end: 20251020

REACTIONS (1)
  - Stomatitis radiation [Recovering/Resolving]

NARRATIVE: CASE EVENT DATE: 20251030
